FAERS Safety Report 17202909 (Version 4)
Quarter: 2020Q1

REPORT INFORMATION
  Report Type: Spontaneous
  Country: US (occurrence: US)
  Receive Date: 20191226
  Receipt Date: 20200204
  Transmission Date: 20200409
  Serious: Yes (Other)
  Sender: FDA-Public Use
  Company Number: US-PFIZER INC-2019555943

PATIENT
  Age: 80 Year
  Sex: Female
  Weight: 128 kg

DRUGS (1)
  1. LORAZEPAM. [Suspect]
     Active Substance: LORAZEPAM
     Dosage: UNK

REACTIONS (4)
  - Therapeutic response unexpected [Unknown]
  - White blood cell count decreased [Unknown]
  - Gastric disorder [Unknown]
  - Drug ineffective [Unknown]
